FAERS Safety Report 6116902-4 (Version None)
Quarter: 2009Q1

REPORT INFORMATION
  Report Type: 
  Country: None (occurrence: None)
  Receive Date: 20090314
  Receipt Date: 20090213
  Transmission Date: 20090719
  Serious: No
  Sender: FDA-Public Use
  Company Number: PR-ABBOTT-09P-131-0499934-00

PATIENT
  Sex: Female
  Weight: 102.15 kg

DRUGS (5)
  1. HUMIRA [Suspect]
     Indication: PSORIASIS
     Route: 058
     Dates: start: 20090106, end: 20090106
  2. HUMIRA [Suspect]
     Route: 058
     Dates: start: 20090113
  3. ALBUTEROL [Concomitant]
     Indication: ASTHMA
     Route: 055
  4. CLOBETAZOL [Concomitant]
     Indication: PSORIASIS
     Route: 061
  5. MIXTURE OF CLOBETAZOL PLUS COLD CREAM POND'S [Concomitant]
     Indication: PSORIASIS
     Route: 061

REACTIONS (3)
  - HYPOAESTHESIA [None]
  - HYPOAESTHESIA FACIAL [None]
  - VISION BLURRED [None]
